FAERS Safety Report 8168844-0 (Version None)
Quarter: 2012Q1

REPORT INFORMATION
  Report Type: 
  Country: None (occurrence: None)
  Receive Date: 20120227
  Receipt Date: 20120223
  Transmission Date: 20120608
  Serious: Yes (Death, Hospitalization, Other)
  Sender: FDA-Public Use
  Company Number: US-BRISTOL-MYERS SQUIBB COMPANY-16416190

PATIENT
  Age: 66 Year
  Sex: Male
  Weight: 54 kg

DRUGS (1)
  1. ERBITUX [Suspect]
     Indication: THROAT CANCER
     Dosage: ABOUT THREE WEEKS PRIOR TO 07FEB2012
     Dates: start: 20120101

REACTIONS (8)
  - FALL [None]
  - VOMITING [None]
  - WEIGHT DECREASED [None]
  - DEATH [None]
  - DIARRHOEA [None]
  - GAIT DISTURBANCE [None]
  - RASH [None]
  - DEHYDRATION [None]
